FAERS Safety Report 22094105 (Version 1)
Quarter: 2023Q1

REPORT INFORMATION
  Report Type: Spontaneous
  Country: US (occurrence: None)
  Receive Date: 20230314
  Receipt Date: 20230314
  Transmission Date: 20230417
  Serious: Yes (Hospitalization)
  Sender: FDA-Public Use
  Company Number: None

PATIENT
  Sex: Male

DRUGS (2)
  1. ADVATE [Suspect]
     Active Substance: ANTIHEMOPHILIC FACTOR, HUMAN RECOMBINANT
     Indication: Factor VIII activity decreased
     Dosage: OTHER QUANTITY : OTHER;?FREQUENCY : AS NEEDED;?
     Route: 042
     Dates: start: 202201
  2. ADVATE [Suspect]
     Active Substance: ANTIHEMOPHILIC FACTOR, HUMAN RECOMBINANT
     Indication: Factor VIII activity decreased
     Dosage: FREQUENCY : AS DIRECTED;?
     Route: 042
     Dates: start: 202201

REACTIONS (2)
  - Haemorrhage [None]
  - Foot fracture [None]

NARRATIVE: CASE EVENT DATE: 20230306
